FAERS Safety Report 5049850-1 (Version None)
Quarter: 2006Q3

REPORT INFORMATION
  Report Type: 
  Country: None (occurrence: None)
  Receive Date: 20060706
  Receipt Date: 20060629
  Transmission Date: 20061208
  Serious: Yes (Death, Other)
  Sender: FDA-Public Use
  Company Number: 232672K06USA

PATIENT
  Age: 72 Year
  Sex: Female
  Weight: 101.6057 kg

DRUGS (3)
  1. REBIF [Suspect]
     Indication: MULTIPLE SCLEROSIS
     Dosage: 44 MCG, 3 IN 1 WEEKS, SUBCUTANEOUS
     Route: 058
     Dates: start: 20040301, end: 20060110
  2. LIPITOR [Concomitant]
  3. HYDROCHLOROTHIAZIDE [Concomitant]

REACTIONS (4)
  - CAROTID ARTERY OCCLUSION [None]
  - CONVULSION [None]
  - POST PROCEDURAL COMPLICATION [None]
  - SUBARACHNOID HAEMORRHAGE [None]
